FAERS Safety Report 10083774 (Version 2)
Quarter: 2014Q2

REPORT INFORMATION
  Report Type: Spontaneous
  Country: FR (occurrence: FR)
  Receive Date: 20140417
  Receipt Date: 20140418
  Transmission Date: 20141212
  Serious: Yes (Hospitalization)
  Sender: FDA-Public Use
  Company Number: FR-ROCHE-1383612

PATIENT
  Age: 41 Year
  Sex: Male

DRUGS (5)
  1. MABTHERA [Suspect]
     Indication: B-CELL LYMPHOMA
     Route: 042
     Dates: start: 20140303, end: 20140303
  2. OXALIPLATIN [Suspect]
     Indication: B-CELL LYMPHOMA
     Route: 042
     Dates: start: 20140303, end: 20140303
  3. CYTARABINE [Suspect]
     Indication: B-CELL LYMPHOMA
     Route: 042
     Dates: start: 20140304, end: 20140305
  4. METHYLPREDNISOLONE [Concomitant]
     Indication: B-CELL LYMPHOMA
     Route: 042
     Dates: start: 20140303, end: 20140303
  5. DEXAMETHASONE [Concomitant]
     Route: 048
     Dates: start: 20140303, end: 20140306

REACTIONS (1)
  - Febrile bone marrow aplasia [Recovered/Resolved]
